FAERS Safety Report 6863229-9 (Version None)
Quarter: 2010Q3

REPORT INFORMATION
  Report Type: 
  Country: None (occurrence: None)
  Receive Date: 20100721
  Receipt Date: 20100707
  Transmission Date: 20110219
  Serious: Yes (Hospitalization, Other)
  Sender: FDA-Public Use
  Company Number: PHHY2010IN46985

PATIENT
  Sex: Female

DRUGS (1)
  1. CYCLOSPORINE [Suspect]
     Indication: IMPETIGO HERPETIFORMIS
     Route: 064

REACTIONS (8)
  - DERMATITIS [None]
  - HYPERBILIRUBINAEMIA [None]
  - HYPOCALCAEMIA [None]
  - HYPOGLYCAEMIA [None]
  - POLYCYTHAEMIA [None]
  - PREMATURE BABY [None]
  - RASH PAPULAR [None]
  - SPINA BIFIDA [None]
